FAERS Safety Report 12140758 (Version 1)
Quarter: 2016Q1

REPORT INFORMATION
  Report Type: Spontaneous
  Country: US (occurrence: None)
  Receive Date: 20160302
  Receipt Date: 20160302
  Transmission Date: 20160526
  Serious: Yes (Disabling)
  Sender: FDA-Public Use
  Company Number: None

PATIENT
  Age: 60 Year
  Sex: Female
  Weight: 71.67 kg

DRUGS (12)
  1. LEVOTHYROXIN [Concomitant]
     Active Substance: LEVOTHYROXINE
  2. LEVOCETIRIZINE [Concomitant]
     Active Substance: LEVOCETIRIZINE
  3. NIACIN. [Concomitant]
     Active Substance: NIACIN
  4. ZINC [Concomitant]
     Active Substance: ZINC\ZINC CHLORIDE
  5. GLUCOSAMINE CHONDROITIN MSM [Concomitant]
  6. TURMERIC CURCUMIN [Concomitant]
     Active Substance: TURMERIC
  7. HYDROCOD/ARAPIO [Concomitant]
  8. CINNAMON. [Concomitant]
     Active Substance: CINNAMON
  9. VITAMIN C [Concomitant]
     Active Substance: ASCORBIC ACID
  10. ANASTROZOLE (GENERIC FOR ARIMIDEX) 1MG TAB [Suspect]
     Active Substance: ANASTROZOLE
     Indication: BREAST CANCER
     Route: 048
     Dates: start: 20150404, end: 20160107
  11. I-MULTIVITAMIN [Concomitant]
  12. CALCIUM 600 + D-3 [Concomitant]

REACTIONS (5)
  - Arthralgia [None]
  - Chest pain [None]
  - Asthenia [None]
  - Back pain [None]
  - Dizziness [None]

NARRATIVE: CASE EVENT DATE: 20150407
